FAERS Safety Report 8317884-7 (Version None)
Quarter: 2012Q2

REPORT INFORMATION
  Report Type: 
  Country: None (occurrence: None)
  Receive Date: 20120427
  Receipt Date: 20110930
  Transmission Date: 20120825
  Serious: No
  Sender: FDA-Public Use
  Company Number: US-MYLANLABS-2011S1020633

PATIENT
  Age: 69 Year
  Sex: Female

DRUGS (5)
  1. HYDROCHLOROTHIAZIDE [Concomitant]
  2. TYLENOL [Concomitant]
  3. ZOLPIDEM [Concomitant]
  4. METHIMAZOLE [Suspect]
     Indication: HYPERTHYROIDISM
     Route: 048
     Dates: start: 20110825, end: 20110916
  5. METHIMAZOLE [Suspect]
     Route: 048
     Dates: start: 20110917

REACTIONS (3)
  - DYSPNOEA [None]
  - PYREXIA [None]
  - PULMONARY CONGESTION [None]
